FAERS Safety Report 16804966 (Version 7)
Quarter: 2021Q4

REPORT INFORMATION
  Report Type: Spontaneous
  Country: GB (occurrence: GB)
  Receive Date: 20190913
  Receipt Date: 20211210
  Transmission Date: 20220303
  Serious: Yes (Congenital Anomaly, Other)
  Sender: FDA-Public Use
  Company Number: PHHY2019GB210231

PATIENT
  Age: 4 Day
  Sex: Male
  Weight: 2.855 kg

DRUGS (14)
  1. LABETALOL [Suspect]
     Active Substance: LABETALOL\LABETALOL HYDROCHLORIDE
     Indication: Foetal exposure during pregnancy
     Dosage: MATERNAL DOSE:UNK
     Route: 064
  2. ABACAVIR\LAMIVUDINE [Suspect]
     Active Substance: ABACAVIR\LAMIVUDINE
     Indication: Foetal exposure during pregnancy
     Dosage: (MATERNAL EXPOSURE:1 DOSAGE FORM, QD)
     Route: 064
  3. NEVIRAPINE [Suspect]
     Active Substance: NEVIRAPINE
     Indication: Foetal exposure during pregnancy
     Dosage: MATERNAL DOSE:400 MG, QD
     Route: 064
  4. NIFEDIPINE [Suspect]
     Active Substance: NIFEDIPINE
     Indication: Foetal exposure during pregnancy
     Dosage: MATERNAL DOSE: UNK
     Route: 064
  5. ASPIRIN [Suspect]
     Active Substance: ASPIRIN
     Indication: Foetal exposure during pregnancy
     Dosage: MATERNAL DOSE:UNK
     Route: 064
  6. ASPIRIN [Suspect]
     Active Substance: ASPIRIN
     Indication: Foetal exposure during pregnancy
     Dosage: MATERNAL DOSE: UNK
     Route: 064
  7. VITAMIN D [Suspect]
     Active Substance: VITAMIN D NOS
     Indication: Foetal exposure during pregnancy
     Dosage: MATERNAL DOSE: UNK
     Route: 064
  8. CHOLECALCIFEROL [Suspect]
     Active Substance: CHOLECALCIFEROL
     Indication: Foetal exposure during pregnancy
     Dosage: MATERNAL DOSE: UNK
     Route: 064
  9. ABACAVIR [Suspect]
     Active Substance: ABACAVIR
     Indication: Foetal exposure during pregnancy
     Dosage: MATERNAL DOSE: UNK, QD
     Route: 064
  10. ABACAVIR [Suspect]
     Active Substance: ABACAVIR
     Dosage: MATERNAL DOSE: 400 DOSAGE FORM, QD
     Route: 064
  11. ABACAVIR [Suspect]
     Active Substance: ABACAVIR
     Dosage: MATERNAL DOSE: 1 DOSAGE FORM, QD ((DOSE: 1 TABLET/CAPSULE; STRENGTH: 600MG/ 300 MG)
     Route: 064
  12. ABACAVIR [Suspect]
     Active Substance: ABACAVIR
     Dosage: MATERNAL DOSE: 400 DOSAGE FORM, QD
     Route: 064
  13. LAMIVUDINE [Suspect]
     Active Substance: LAMIVUDINE
     Indication: Foetal exposure during pregnancy
     Dosage: MATERNAL DOSE: 1 DOSAGE FORM, QD (DOSE: 1 TABLET/CAPSULE; STRENGTH: 600MG/ 300 MG)
     Route: 064
  14. LAMIVUDINE [Suspect]
     Active Substance: LAMIVUDINE
     Dosage: 1 UNK
     Route: 064

REACTIONS (2)
  - Polydactyly [Unknown]
  - Foetal exposure during pregnancy [Unknown]

NARRATIVE: CASE EVENT DATE: 20190816
